FAERS Safety Report 5317012-6 (Version None)
Quarter: 2007Q2

REPORT INFORMATION
  Report Type: 
  Country: None (occurrence: None)
  Receive Date: 20070504
  Receipt Date: 20070420
  Transmission Date: 20071010
  Serious: Yes (Other)
  Sender: FDA-Public Use
  Company Number: JP-ROCHE-486908

PATIENT
  Age: 15 Year
  Sex: Female

DRUGS (5)
  1. TAMIFLU [Suspect]
     Route: 048
     Dates: start: 20070306, end: 20070306
  2. MEDICON [Concomitant]
     Route: 048
     Dates: start: 20070306, end: 20070310
  3. MUCODYNE [Concomitant]
     Route: 048
     Dates: start: 20070306, end: 20070310
  4. SP [Concomitant]
     Dosage: FORM: LOZENGE. ROUTE: OROPHARINGEAL.
     Route: 050
     Dates: start: 20070306, end: 20070310
  5. CALONAL [Concomitant]
     Route: 054
     Dates: start: 20070306

REACTIONS (1)
  - ABNORMAL BEHAVIOUR [None]
